FAERS Safety Report 25706048 (Version 1)
Quarter: 2025Q3

REPORT INFORMATION
  Report Type: Other
  Country: CA (occurrence: CA)
  Receive Date: 20250820
  Receipt Date: 20250820
  Transmission Date: 20251021
  Serious: Yes (Other)
  Sender: APOTEX
  Company Number: CA-PGRTD-E2B_08004243

PATIENT
  Sex: Male

DRUGS (2)
  1. RISPERIDONE [Suspect]
     Active Substance: RISPERIDONE
     Indication: Schizophrenia
     Route: 065
  2. ABILIFY [Suspect]
     Active Substance: ARIPIPRAZOLE
     Indication: Schizophrenia
     Route: 065

REACTIONS (18)
  - Appetite disorder [Unknown]
  - Oropharyngeal pain [Unknown]
  - Amnesia [Unknown]
  - Metabolic disorder [Unknown]
  - Rhinorrhoea [Unknown]
  - Asthenia [Unknown]
  - Dry mouth [Unknown]
  - Drooling [Unknown]
  - Flatulence [Unknown]
  - Syncope [Unknown]
  - Somnolence [Unknown]
  - Weight increased [Unknown]
  - Tremor [Unknown]
  - Fatigue [Unknown]
  - Insomnia [Unknown]
  - Dyspepsia [Unknown]
  - Abdominal discomfort [Unknown]
  - Constipation [Unknown]
